FAERS Safety Report 7236974-3 (Version None)
Quarter: 2011Q1

REPORT INFORMATION
  Report Type: 
  Country: None (occurrence: None)
  Receive Date: 20110121
  Receipt Date: 20110113
  Transmission Date: 20110831
  Serious: Yes (Other)
  Sender: FDA-Public Use
  Company Number: US-BIOGENIDEC-2011BI001723

PATIENT
  Age: 69 Year
  Sex: Female

DRUGS (1)
  1. AVONEX [Suspect]
     Indication: MULTIPLE SCLEROSIS
     Route: 030
     Dates: start: 20061105

REACTIONS (4)
  - MULTIPLE SCLEROSIS RELAPSE [None]
  - FALL [None]
  - CEREBROVASCULAR ACCIDENT [None]
  - MENINGIOMA [None]
